FAERS Safety Report 24637670 (Version 1)
Quarter: 2024Q4

REPORT INFORMATION
  Report Type: Spontaneous
  Country: SE (occurrence: SE)
  Receive Date: 20241119
  Receipt Date: 20241119
  Transmission Date: 20250114
  Serious: Yes (Life-Threatening)
  Sender: BEIGENE
  Company Number: None

PATIENT

DRUGS (6)
  1. BRUKINSA [Suspect]
     Active Substance: ZANUBRUTINIB
     Indication: Waldenstrom^s macroglobulinaemia
     Dosage: 80 MILLIGRAM, QD
     Route: 048
     Dates: start: 20240731
  2. Furix [Concomitant]
     Dosage: 40 MILLIGRAM, QD
     Route: 048
     Dates: start: 20240925, end: 20241111
  3. ATORVASTATIN [Concomitant]
     Active Substance: ATORVASTATIN
     Dosage: 10 MILLIGRAM, QD
     Route: 048
     Dates: start: 20150209, end: 20241111
  4. Bisoprolol abacus medicine [Concomitant]
     Route: 048
     Dates: start: 20220815, end: 20241111
  5. POTASSIUM CHLORIDE [Concomitant]
     Active Substance: POTASSIUM CHLORIDE
     Dosage: 750 MILLIGRAM
     Route: 048
     Dates: start: 20240912, end: 20241111
  6. Folsyra eql pharma [Concomitant]
     Dosage: 2 MILLIGRAM
     Route: 048
     Dates: start: 20240830, end: 20241111

REACTIONS (1)
  - Herpes simplex encephalitis [Unknown]

NARRATIVE: CASE EVENT DATE: 20241111
